FAERS Safety Report 17020915 (Version 1)
Quarter: 2019Q4

REPORT INFORMATION
  Report Type: Spontaneous
  Country: US (occurrence: US)
  Receive Date: 20191112
  Receipt Date: 20191112
  Transmission Date: 20200122
  Serious: Yes (Death, Hospitalization, Other)
  Sender: FDA-Public Use
  Company Number: US-VIIV HEALTHCARE LIMITED-US2019GSK200246

PATIENT
  Age: 33 Year
  Sex: Male

DRUGS (6)
  1. TRIMETHOPRIM + SULFAMETHOXAZOL [Concomitant]
     Active Substance: SULFAMERAZINE SODIUM\TRIMETHOPRIM
     Indication: OPPORTUNISTIC INFECTION PROPHYLAXIS
     Dosage: UNK
  2. DOLUTEGRAVIR [Suspect]
     Active Substance: DOLUTEGRAVIR
     Indication: HIV INFECTION
     Dosage: UNK
  3. MARAVIROC [Concomitant]
     Active Substance: MARAVIROC
     Indication: IMMUNOMODULATORY THERAPY
     Dosage: UNK
  4. AZITHROMYCIN ANHYDROUS. [Concomitant]
     Active Substance: AZITHROMYCIN ANHYDROUS
     Indication: OPPORTUNISTIC INFECTION PROPHYLAXIS
     Dosage: UNK
  5. CLONAZEPAM. [Concomitant]
     Active Substance: CLONAZEPAM
     Indication: NEURITIS
     Dosage: UNK
  6. EMTRICITABINE + TENOFOVIR ALAFENAMIDE [Suspect]
     Active Substance: EMTRICITABINE\TENOFOVIR ALAFENAMIDE FUMARATE
     Indication: HIV INFECTION
     Dosage: UNK

REACTIONS (21)
  - Visual acuity reduced [Unknown]
  - Pneumonia [Unknown]
  - Oral candidiasis [Unknown]
  - Oesophageal ulcer [Unknown]
  - Clostridium difficile infection [Unknown]
  - Immune reconstitution inflammatory syndrome [Fatal]
  - Brain oedema [Unknown]
  - HIV-associated neurocognitive disorder [Fatal]
  - Neurological symptom [Unknown]
  - Ataxia [Unknown]
  - Dysarthria [Unknown]
  - Muscular weakness [Unknown]
  - Paraesthesia [Unknown]
  - Pyrexia [Unknown]
  - Dysphagia [Unknown]
  - Quadriplegia [Unknown]
  - Hypoxia [Unknown]
  - Herpes simplex [Unknown]
  - Myelopathy [Fatal]
  - Blindness [Unknown]
  - Lung abscess [Unknown]
